FAERS Safety Report 4385101-9 (Version None)
Quarter: 2004Q2

REPORT INFORMATION
  Report Type: 
  Country: None (occurrence: None)
  Receive Date: 20040624
  Receipt Date: 20040624
  Transmission Date: 20050107
  Serious: Yes (Hospitalization)
  Sender: FDA-Public Use
  Company Number: None

PATIENT
  Age: 53 Year
  Sex: Male
  Weight: 84.7 kg

DRUGS (9)
  1. METOPROLOL 12.5 MG [Suspect]
     Indication: ATRIAL FIBRILLATION
     Dosage: 12.5 MG TWICE DAILY ORAL
     Route: 048
     Dates: start: 20040525, end: 20040525
  2. ASPIRIN [Concomitant]
  3. DIGOXIN [Concomitant]
  4. DILTIAZEM [Concomitant]
  5. FOSINOPRIL SODIUM [Concomitant]
  6. GLYBURIDE [Concomitant]
  7. SIMVASTATIN [Concomitant]
  8. VERAMPAMIL [Concomitant]
  9. WARFARIN SODIUM [Concomitant]

REACTIONS (3)
  - BRADYCARDIA [None]
  - HYPERHIDROSIS [None]
  - HYPOTENSION [None]
